FAERS Safety Report 24943637 (Version 1)
Quarter: 2025Q1

REPORT INFORMATION
  Report Type: Spontaneous
  Country: US (occurrence: US)
  Receive Date: 20250207
  Receipt Date: 20250207
  Transmission Date: 20250409
  Serious: Yes (Hospitalization, Other)
  Sender: PFIZER
  Company Number: US-PFIZER INC-PV202500013882

PATIENT
  Age: 79 Year
  Sex: Female

DRUGS (12)
  1. IBRANCE [Suspect]
     Active Substance: PALBOCICLIB
     Indication: Breast cancer stage IV
     Route: 048
     Dates: start: 20201016
  2. IBRANCE [Suspect]
     Active Substance: PALBOCICLIB
     Route: 048
     Dates: start: 202307
  3. IBRANCE [Suspect]
     Active Substance: PALBOCICLIB
     Route: 048
     Dates: start: 20230925
  4. IBRANCE [Suspect]
     Active Substance: PALBOCICLIB
     Route: 048
  5. IBRANCE [Suspect]
     Active Substance: PALBOCICLIB
     Route: 048
     Dates: end: 202402
  6. IBRANCE [Suspect]
     Active Substance: PALBOCICLIB
     Route: 048
     Dates: start: 20240312, end: 20240408
  7. IBRANCE [Suspect]
     Active Substance: PALBOCICLIB
     Route: 048
     Dates: start: 20240423
  8. LASIX [Suspect]
     Active Substance: FUROSEMIDE
  9. FEMARA [Concomitant]
     Active Substance: LETROZOLE
     Dosage: 2.5 MG, DAILY
     Dates: start: 20201016
  10. CALCIUM\CHOLECALCIFEROL [Concomitant]
     Active Substance: CALCIUM\CHOLECALCIFEROL
     Dosage: UNK, 2X/DAY
  11. XGEVA [Concomitant]
     Active Substance: DENOSUMAB
     Dates: end: 202308
  12. XGEVA [Concomitant]
     Active Substance: DENOSUMAB

REACTIONS (14)
  - Respiratory failure [Unknown]
  - Left ventricular failure [Unknown]
  - Pneumonia [Unknown]
  - Hyponatraemia [Unknown]
  - Anaemia [Unknown]
  - Neutropenia [Unknown]
  - Nausea [Unknown]
  - Fatigue [Unknown]
  - Quality of life decreased [Unknown]
  - Neoplasm progression [Unknown]
  - Asthenia [Unknown]
  - Blood calcium decreased [Unknown]
  - Off label use [Unknown]
  - Product use issue [Unknown]
